FAERS Safety Report 13488155 (Version 1)
Quarter: 2017Q2

REPORT INFORMATION
  Report Type: Spontaneous
  Country: US (occurrence: US)
  Receive Date: 20170426
  Receipt Date: 20170426
  Transmission Date: 20170830
  Serious: Yes (Hospitalization)
  Sender: FDA-Public Use
  Company Number: US-ALKERMES INC.-ALK-2016-003166

PATIENT
  Age: 33 Year
  Sex: Male
  Weight: 90.7 kg

DRUGS (2)
  1. VIVITROL [Suspect]
     Active Substance: NALTREXONE
     Indication: DRUG USE DISORDER
     Dosage: 380 MG, QMO
     Route: 030
     Dates: start: 20161020
  2. VIVITROL [Suspect]
     Active Substance: NALTREXONE
     Indication: ALCOHOLISM

REACTIONS (12)
  - Sluggishness [Unknown]
  - Irritability [Unknown]
  - Asthenia [Unknown]
  - Injection site reaction [Unknown]
  - Nausea [Unknown]
  - Lethargy [Unknown]
  - Arthralgia [Unknown]
  - Decreased appetite [Unknown]
  - Gait disturbance [Unknown]
  - Injection site pain [Unknown]
  - Fatigue [Unknown]
  - Arteriosclerosis [Unknown]

NARRATIVE: CASE EVENT DATE: 201610
